FAERS Safety Report 23281703 (Version 1)
Quarter: 2023Q4

REPORT INFORMATION
  Report Type: Spontaneous
  Country: LT (occurrence: LT)
  Receive Date: 20231211
  Receipt Date: 20231211
  Transmission Date: 20240110
  Serious: Yes (Life-Threatening, Hospitalization, Other)
  Sender: FDA-Public Use
  Company Number: LT-MLMSERVICE-20231123-4683655-1

PATIENT
  Age: 9 Month
  Sex: Male

DRUGS (10)
  1. CARBOPLATIN [Suspect]
     Active Substance: CARBOPLATIN
     Indication: Metastases to lung
  2. ETOPOSIDE [Suspect]
     Active Substance: ETOPOSIDE
     Indication: Metastases to liver
  3. BLEOMYCIN [Suspect]
     Active Substance: BLEOMYCIN SULFATE
     Indication: Metastases to lung
  4. CARBOPLATIN [Suspect]
     Active Substance: CARBOPLATIN
     Indication: Yolk sac tumour site unspecified
  5. BLEOMYCIN [Suspect]
     Active Substance: BLEOMYCIN SULFATE
     Indication: Yolk sac tumour site unspecified
  6. ETOPOSIDE [Suspect]
     Active Substance: ETOPOSIDE
     Indication: Yolk sac tumour site unspecified
  7. CARBOPLATIN [Suspect]
     Active Substance: CARBOPLATIN
     Indication: Metastases to liver
  8. CARBOPLATIN [Suspect]
     Active Substance: CARBOPLATIN
     Indication: Metastases to lung
  9. BLEOMYCIN [Suspect]
     Active Substance: BLEOMYCIN SULFATE
     Indication: Metastases to liver
  10. ETOPOSIDE [Suspect]
     Active Substance: ETOPOSIDE
     Indication: Metastases to lung

REACTIONS (9)
  - Renal failure [Recovering/Resolving]
  - Sepsis [Recovering/Resolving]
  - Multiple organ dysfunction syndrome [Recovering/Resolving]
  - Hepatic failure [Recovering/Resolving]
  - Gastrointestinal haemorrhage [Recovering/Resolving]
  - Myelosuppression [Recovering/Resolving]
  - Coagulopathy [Recovering/Resolving]
  - Respiratory failure [Recovering/Resolving]
  - Off label use [Unknown]
